FAERS Safety Report 6426395-5 (Version None)
Quarter: 2009Q4

REPORT INFORMATION
  Report Type: 
  Country: None (occurrence: None)
  Receive Date: 20091030
  Receipt Date: 20091015
  Transmission Date: 20100525
  Serious: Yes (Other)
  Sender: FDA-Public Use
  Company Number: 2009BI020783

PATIENT
  Age: 44 Year
  Sex: Female

DRUGS (15)
  1. ZEVALIN [Suspect]
     Indication: LYMPHOMA
     Dosage: 644 MBQ; 1X; IV
     Route: 042
     Dates: start: 20090303, end: 20090310
  2. RITUXIMAB [Concomitant]
  3. ANTIPYRETICS [Concomitant]
  4. ANALGESICS [Concomitant]
  5. ANTIINFLAMMATORY [Concomitant]
  6. ANTIHISTAMINES [Concomitant]
  7. MYSLEE [Concomitant]
  8. ZYLORIC [Concomitant]
  9. LANSOPRAZOLE [Concomitant]
  10. PRIMPERAN [Concomitant]
  11. FLUDEOXYGLUCOSE [Concomitant]
  12. ETOPOSIDE [Concomitant]
  13. METHYLPREDNISOLONE 4MG TAB [Concomitant]
  14. CYTARABINE [Concomitant]
  15. CISPLATIN [Concomitant]

REACTIONS (3)
  - PLATELET COUNT DECREASED [None]
  - RENAL IMPAIRMENT [None]
  - WHITE BLOOD CELL COUNT DECREASED [None]
